FAERS Safety Report 5381983-2 (Version None)
Quarter: 2007Q3

REPORT INFORMATION
  Report Type: 
  Country: None (occurrence: None)
  Receive Date: 20070709
  Receipt Date: 20070705
  Transmission Date: 20080115
  Serious: Yes (Hospitalization)
  Sender: FDA-Public Use
  Company Number: B0471072A

PATIENT
  Age: 59 Year
  Sex: Male

DRUGS (3)
  1. AUGMENTIN '125' [Suspect]
     Dosage: 3G PER DAY
     Route: 042
     Dates: start: 20070422, end: 20070425
  2. PHENYTOIN [Suspect]
     Indication: GLIOMA
     Dosage: 300MG PER DAY
     Route: 048
     Dates: start: 20070406, end: 20070502
  3. PARACETAMOL [Concomitant]
     Route: 065

REACTIONS (2)
  - EOSINOPHILIA [None]
  - GENERALISED ERYTHEMA [None]
